FAERS Safety Report 15732492 (Version 1)
Quarter: 2018Q4

REPORT INFORMATION
  Report Type: Spontaneous
  Country: US (occurrence: US)
  Receive Date: 20181217
  Receipt Date: 20181217
  Transmission Date: 20190205
  Serious: Yes (Hospitalization)
  Sender: FDA-Public Use
  Company Number: US-VIFOR (INTERNATIONAL) INC.-VIT-2018-03705

PATIENT
  Sex: Male

DRUGS (28)
  1. ACETAMINOPHEN. [Concomitant]
     Active Substance: ACETAMINOPHEN
  2. BETADINE [Concomitant]
     Active Substance: POVIDONE-IODINE
  3. BISAC EVAC [Concomitant]
  4. FUROSEMIDE. [Concomitant]
     Active Substance: FUROSEMIDE
  5. GLUCOSE [Concomitant]
     Active Substance: DEXTROSE
  6. LISINOPRIL. [Concomitant]
     Active Substance: LISINOPRIL
  7. VELTASSA [Suspect]
     Active Substance: PATIROMER
     Indication: HYPERKALAEMIA
     Route: 066
  8. BRIMONIDINE [Concomitant]
     Active Substance: BRIMONIDINE TARTRATE
  9. CARVEDILOL. [Concomitant]
     Active Substance: CARVEDILOL
  10. CYMBALTA [Concomitant]
     Active Substance: DULOXETINE HYDROCHLORIDE
  11. DOCUSATE SODIUM. [Concomitant]
     Active Substance: DOCUSATE SODIUM
  12. HYDROCODONE/ACETAMINOPHEN [Concomitant]
     Active Substance: ACETAMINOPHEN\HYDROCODONE
  13. NYSTATIN W/TRIAMCINOLONE [Concomitant]
  14. TAB A VITE [Concomitant]
  15. ASCORBIC ACID. [Concomitant]
     Active Substance: ASCORBIC ACID
  16. CEPACOL SORE THROAT NOS [Concomitant]
     Active Substance: BENZOCAINE\MENTHOL OR DYCLONINE HYDROCHLORIDE\GLYCERIN
  17. HUMALOG [Concomitant]
     Active Substance: INSULIN LISPRO
  18. LATANOPROST. [Concomitant]
     Active Substance: LATANOPROST
  19. MILK OF MAGNESIA [Concomitant]
     Active Substance: MAGNESIUM HYDROXIDE
  20. SENNA [Concomitant]
     Active Substance: SENNA LEAF\SENNOSIDES\SENNOSIDES A AND B
  21. TIMOLOL MALEATE. [Concomitant]
     Active Substance: TIMOLOL MALEATE
  22. POLYETHYLENE GLYCOL 3350. [Concomitant]
     Active Substance: POLYETHYLENE GLYCOL 3350
  23. FERROUS SULFATE. [Concomitant]
     Active Substance: FERROUS SULFATE
  24. FLEET ENEMA [Concomitant]
     Active Substance: SODIUM PHOSPHATE, DIBASIC\SODIUM PHOSPHATE, MONOBASIC
  25. GABAPENTIN. [Concomitant]
     Active Substance: GABAPENTIN
  26. HEPARIN SODIUM PORCINE [Concomitant]
     Active Substance: HEPARIN SODIUM
  27. LEVEMIR [Concomitant]
     Active Substance: INSULIN DETEMIR
  28. VITAMIN D3 [Concomitant]
     Active Substance: CHOLECALCIFEROL

REACTIONS (1)
  - Hospitalisation [Unknown]
